FAERS Safety Report 6743009-5 (Version None)
Quarter: 2010Q2

REPORT INFORMATION
  Report Type: 
  Country: None (occurrence: None)
  Receive Date: 20100527
  Receipt Date: 20100518
  Transmission Date: 20101027
  Serious: No
  Sender: FDA-Public Use
  Company Number: US-BIOGENIDEC-2010BI016901

PATIENT
  Age: 30 Year
  Sex: Male

DRUGS (1)
  1. TYSABRI [Suspect]
     Indication: MULTIPLE SCLEROSIS
     Route: 042
     Dates: start: 20100507

REACTIONS (5)
  - LYMPHADENOPATHY [None]
  - MUSCLE TIGHTNESS [None]
  - OROPHARYNGEAL PAIN [None]
  - PYREXIA [None]
  - THROAT TIGHTNESS [None]
